FAERS Safety Report 4506940-7 (Version None)
Quarter: 2004Q4

REPORT INFORMATION
  Report Type: 
  Country: None (occurrence: None)
  Receive Date: 20041025
  Receipt Date: 20040726
  Transmission Date: 20050328
  Serious: Yes (Hospitalization)
  Sender: FDA-Public Use
  Company Number: US-JNJFOC-20040707132

PATIENT
  Age: 47 Year
  Sex: Female

DRUGS (11)
  1. INFLIXIMAB (INFLIXIMAB, RECOMBINANT) LYOPHILIZED POWDER [Suspect]
     Indication: RHEUMATOID ARTHRITIS
     Dosage: INTRAVENOUS
     Route: 042
     Dates: start: 20020926
  2. EFFEXOR [Concomitant]
  3. PREMARIN [Concomitant]
  4. PRILOSEC [Concomitant]
  5. DALMANE [Concomitant]
  6. SOMA [Concomitant]
  7. FLEXERIL [Concomitant]
  8. PREDNISONE [Concomitant]
  9. BEXTRA [Concomitant]
  10. TOPROL-XL [Concomitant]
  11. ULTRACET (TRAMADOL/APAP) [Concomitant]

REACTIONS (1)
  - CHEST PAIN [None]
